FAERS Safety Report 9056720 (Version 1)
Quarter: 2013Q1

REPORT INFORMATION
  Report Type: Spontaneous
  Country: US (occurrence: US)
  Receive Date: 20130204
  Receipt Date: 20130204
  Transmission Date: 20140127
  Serious: Yes (Hospitalization)
  Sender: FDA-Public Use
  Company Number: US-AMGEN-USASP2013004436

PATIENT
  Sex: Male

DRUGS (3)
  1. ENBREL [Suspect]
     Indication: RHEUMATOID ARTHRITIS
     Dosage: 25 MG, 2 TIMES/WK
     Dates: start: 19991001
  2. METHOTREXATE [Concomitant]
     Dosage: 2.5 MG, 4 TABLETS WEEKLY
     Dates: start: 1983
  3. PLAQUENIL                          /00072602/ [Concomitant]
     Dosage: 200 MG, QD
     Dates: start: 1993

REACTIONS (8)
  - Pleural infection bacterial [Recovered/Resolved]
  - Nephrolithiasis [Recovered/Resolved]
  - Bronchiectasis [Not Recovered/Not Resolved]
  - Gout [Not Recovered/Not Resolved]
  - Granuloma annulare [Not Recovered/Not Resolved]
  - Rash [Not Recovered/Not Resolved]
  - Skin discolouration [Not Recovered/Not Resolved]
  - Back pain [Recovered/Resolved]
